FAERS Safety Report 20854763 (Version 1)
Quarter: 2022Q2

REPORT INFORMATION
  Report Type: Spontaneous
  Country: US (occurrence: None)
  Receive Date: 20220519
  Receipt Date: 20220519
  Transmission Date: 20220721
  Serious: Yes (Hospitalization)
  Sender: FDA-Public Use
  Company Number: None

PATIENT
  Age: 65 Year
  Sex: Female

DRUGS (16)
  1. AMBRISENTAN [Suspect]
     Active Substance: AMBRISENTAN
     Indication: Pulmonary hypertension
     Dosage: FREQUENCY : DAILY;?
     Route: 048
     Dates: start: 20140827
  2. SILDENAFIL [Concomitant]
  3. OMEPRAZOLE [Concomitant]
  4. FOLIC ACID [Concomitant]
  5. PHENYTOIN [Concomitant]
  6. LOSARTAN [Concomitant]
  7. POTASSIUM CHLORIDE [Concomitant]
  8. LASIX [Concomitant]
  9. LEVOTHYROXINE [Concomitant]
  10. XIFAXXAN [Concomitant]
  11. URSODIOL [Concomitant]
  12. LACTULOSE [Concomitant]
  13. ATORVASTATIN [Concomitant]
  14. CALCIUM\VITAMIN D [Concomitant]
     Active Substance: CALCIUM\VITAMIN D
  15. EPOGEN [Concomitant]
  16. IRON SUCROSE [Concomitant]

REACTIONS (6)
  - Contusion [None]
  - Ligament sprain [None]
  - Foot fracture [None]
  - Fall [None]
  - Sinus node dysfunction [None]
  - Abdominal pain [None]

NARRATIVE: CASE EVENT DATE: 20220402
